FAERS Safety Report 10244662 (Version 2)
Quarter: 2014Q3

REPORT INFORMATION
  Report Type: Spontaneous
  Country: IL (occurrence: IL)
  Receive Date: 20140618
  Receipt Date: 20140801
  Transmission Date: 20150326
  Serious: Yes (Hospitalization)
  Sender: FDA-Public Use
  Company Number: IL-BRISTOL-MYERS SQUIBB COMPANY-20968400

PATIENT
  Age: 84 Year
  Sex: Female

DRUGS (1)
  1. SPRYCEL [Suspect]
     Active Substance: DASATINIB
     Indication: CHRONIC MYELOID LEUKAEMIA
     Dosage: DOSE REDUCED TO 70MG/D

REACTIONS (3)
  - Monoclonal immunoglobulin present [Unknown]
  - Globulins increased [Unknown]
  - Neutropenia [Unknown]
